FAERS Safety Report 4552741-3 (Version None)
Quarter: 2005Q1

REPORT INFORMATION
  Report Type: 
  Country: None (occurrence: None)
  Receive Date: 20050114
  Receipt Date: 20050105
  Transmission Date: 20050727
  Serious: Yes (Other)
  Sender: FDA-Public Use
  Company Number: PHBS2005BR00523

PATIENT
  Age: 57 Year
  Sex: Female
  Weight: 59 kg

DRUGS (3)
  1. ESTRADOT [Suspect]
     Indication: HORMONE REPLACEMENT THERAPY
     Dosage: 1 PATCH/WEEK
     Route: 062
  2. VITAMIN C [Concomitant]
     Route: 048
  3. VITAMIN E [Concomitant]
     Route: 048

REACTIONS (3)
  - NODULE [None]
  - OEDEMA PERIPHERAL [None]
  - THROMBOSIS [None]
